FAERS Safety Report 4880514-0 (Version None)
Quarter: 2005Q4

REPORT INFORMATION
  Report Type: 
  Country: None (occurrence: None)
  Receive Date: 20051223
  Receipt Date: 20050916
  Transmission Date: 20060501
  Serious: No
  Sender: FDA-Public Use
  Company Number: 05P-163-0294498-00

PATIENT
  Age: 57 Year
  Sex: Female
  Weight: 55.7924 kg

DRUGS (4)
  1. HUMIRA [Suspect]
     Indication: RHEUMATOID ARTHRITIS
     Dosage: 40 MG, 1 IN 2 WK, SUBCUTANEOUS
     Route: 058
     Dates: start: 20050314, end: 20050530
  2. METHOTREXATE [Concomitant]
  3. FOLIC ACID [Concomitant]
  4. IBUPROFEN [Concomitant]

REACTIONS (5)
  - HEADACHE [None]
  - INJECTION SITE DISCOLOURATION [None]
  - INJECTION SITE INDURATION [None]
  - PHARYNGOLARYNGEAL PAIN [None]
  - RHINORRHOEA [None]
